FAERS Safety Report 6826949-8 (Version None)
Quarter: 2010Q3

REPORT INFORMATION
  Report Type: 
  Country: None (occurrence: None)
  Receive Date: 20100709
  Receipt Date: 20100707
  Transmission Date: 20110219
  Serious: Yes (Death, Hospitalization)
  Sender: FDA-Public Use
  Company Number: CN-ROCHE-713712

PATIENT
  Age: 57 Year
  Sex: Female

DRUGS (3)
  1. CELLCEPT [Suspect]
     Indication: RENAL TRANSPLANT
     Route: 048
     Dates: start: 20100305, end: 20100325
  2. PREDNISONE [Suspect]
     Indication: RENAL TRANSPLANT
     Route: 048
     Dates: start: 20100305, end: 20100325
  3. CICLOSPORIN [Suspect]
     Indication: RENAL TRANSPLANT
     Route: 048
     Dates: start: 20100305, end: 20100325

REACTIONS (2)
  - CEREBROVASCULAR ACCIDENT [None]
  - LUNG INFECTION [None]
